FAERS Safety Report 5236427-8 (Version None)
Quarter: 2007Q1

REPORT INFORMATION
  Report Type: 
  Country: None (occurrence: None)
  Receive Date: 20070212
  Receipt Date: 20070131
  Transmission Date: 20070707
  Serious: Yes (Death, Hospitalization)
  Sender: FDA-Public Use
  Company Number: SE-PFIZER INC-2007009737

PATIENT
  Sex: Male
  Weight: 92 kg

DRUGS (18)
  1. SUTENT [Suspect]
     Indication: METASTATIC RENAL CELL CARCINOMA
     Route: 048
     Dates: start: 20061211, end: 20061217
  2. MORPHINE [Concomitant]
     Dates: start: 20061101, end: 20061201
  3. DOLCONTIN [Concomitant]
     Route: 048
     Dates: start: 20061204, end: 20061201
  4. DULCOLAX [Concomitant]
     Dates: start: 20060101, end: 20061201
  5. LAXOBERAL [Concomitant]
     Dates: start: 20060101, end: 20061201
  6. GASTROGRAFIN [Concomitant]
     Dosage: DAILY DOSE:50ML
     Dates: start: 20060101, end: 20061201
  7. SODIUM CHLORIDE [Concomitant]
     Dates: start: 20060101, end: 20061201
  8. EUFUSOL [Concomitant]
     Dates: start: 20060101, end: 20061201
  9. CITODON [Concomitant]
     Route: 048
     Dates: start: 20060101, end: 20061201
  10. MOVICOL [Concomitant]
     Dates: start: 20060101, end: 20061201
  11. BETAPRED [Concomitant]
     Route: 048
     Dates: start: 20060101, end: 20061201
  12. OMEPRAZOLE [Concomitant]
     Route: 048
     Dates: start: 20060101, end: 20061201
  13. ALVEDON [Concomitant]
     Route: 048
     Dates: start: 20060101, end: 20061201
  14. OXYCONTIN [Concomitant]
     Dates: start: 20060101, end: 20061201
  15. OXYNORM [Concomitant]
     Dates: start: 20060101, end: 20061201
  16. TRYPTIZOL [Concomitant]
     Dates: start: 20060101, end: 20061201
  17. TORADOL [Concomitant]
     Dates: start: 20060101, end: 20061201
  18. VOLTAREN [Concomitant]
     Dates: start: 20060101, end: 20061201

REACTIONS (3)
  - DEATH [None]
  - LEUKOPENIA [None]
  - SEPSIS [None]
